FAERS Safety Report 5567225-3 (Version None)
Quarter: 2007Q4

REPORT INFORMATION
  Report Type: 
  Country: None (occurrence: None)
  Receive Date: 20071219
  Receipt Date: 20071211
  Transmission Date: 20080405
  Serious: Yes (Death, Hospitalization)
  Sender: FDA-Public Use
  Company Number: NO-AVENTIS-200721383GDDC

PATIENT
  Age: 83 Year
  Sex: Female

DRUGS (9)
  1. AMARYL [Suspect]
     Route: 048
     Dates: end: 20071103
  2. AZILECT [Suspect]
     Indication: PARKINSON'S DISEASE
     Route: 048
     Dates: start: 20070921, end: 20071103
  3. GLUCOPHAGE [Suspect]
     Route: 048
     Dates: end: 20071103
  4. RAMIPRIL [Concomitant]
     Indication: HYPERTENSION
     Route: 048
     Dates: end: 20071103
  5. FUROSEMIDE [Concomitant]
     Indication: HYPERTENSION
     Route: 048
     Dates: end: 20071103
  6. FUROSEMIDE [Concomitant]
     Route: 048
     Dates: end: 20071103
  7. RELIFEX [Concomitant]
     Indication: RHEUMATOID ARTHRITIS
     Route: 048
     Dates: end: 20071103
  8. SINEMET [Concomitant]
     Indication: PARKINSON'S DISEASE
     Dosage: DOSE: 25/100
     Route: 048
     Dates: start: 20070201, end: 20071103
  9. TRIMETOPRIM                        /00086101/ [Concomitant]
     Indication: URINARY TRACT INFECTION
     Route: 048
     Dates: start: 20071029, end: 20071103

REACTIONS (4)
  - BRAIN DAMAGE [None]
  - DEATH [None]
  - DRUG INTERACTION [None]
  - HYPOGLYCAEMIC UNCONSCIOUSNESS [None]
